FAERS Safety Report 24129051 (Version 1)
Quarter: 2024Q3

REPORT INFORMATION
  Report Type: Spontaneous
  Country: US (occurrence: US)
  Receive Date: 20240723
  Receipt Date: 20240723
  Transmission Date: 20241017
  Serious: No
  Sender: BRISTOL MYERS SQUIBB
  Company Number: US-BRISTOL-MYERS SQUIBB COMPANY-2024-114494

PATIENT
  Age: 73 Year
  Sex: Female

DRUGS (2)
  1. LENALIDOMIDE [Suspect]
     Active Substance: LENALIDOMIDE
     Indication: Diffuse large B-cell lymphoma
     Route: 048
     Dates: start: 20240614
  2. LENALIDOMIDE [Suspect]
     Active Substance: LENALIDOMIDE
     Route: 048

REACTIONS (4)
  - Disorientation [Not Recovered/Not Resolved]
  - Headache [Not Recovered/Not Resolved]
  - Confusional state [Not Recovered/Not Resolved]
  - Off label use [Unknown]
